FAERS Safety Report 25357647 (Version 2)
Quarter: 2025Q3

REPORT INFORMATION
  Report Type: Report from Study
  Country: CA (occurrence: CA)
  Receive Date: 20250526
  Receipt Date: 20250711
  Transmission Date: 20251020
  Serious: Yes (Hospitalization, Other)
  Sender: BRISTOL-MYERS SQUIBB COMPANY
  Company Number: CA-BRISTOL-MYERS SQUIBB COMPANY-2025-067025

PATIENT
  Age: 77 Year
  Sex: Male
  Weight: 64 kg

DRUGS (1)
  1. REBLOZYL [Suspect]
     Active Substance: LUSPATERCEPT-AAMT
     Indication: Myelodysplastic syndrome
     Route: 058
     Dates: start: 20250506

REACTIONS (9)
  - Blood pressure increased [Unknown]
  - Heart rate decreased [Unknown]
  - Incorrect dose administered [Unknown]
  - Renal impairment [Unknown]
  - Dehydration [Unknown]
  - Jaundice [Unknown]
  - Hypotension [Unknown]
  - Hypovolaemia [Unknown]
  - Hyposplenism [Unknown]

NARRATIVE: CASE EVENT DATE: 20250101
